FAERS Safety Report 4288990-1 (Version None)
Quarter: 2004Q1

REPORT INFORMATION
  Report Type: 
  Country: None (occurrence: None)
  Receive Date: 20040205
  Receipt Date: 20030804
  Transmission Date: 20041129
  Serious: Yes (Hospitalization)
  Sender: FDA-Public Use
  Company Number: 03P-163-0228203-00

PATIENT
  Sex: Male

DRUGS (1)
  1. TRICOR [Suspect]

REACTIONS (1)
  - PANCREATITIS [None]
